FAERS Safety Report 16737432 (Version 1)
Quarter: 2019Q3

REPORT INFORMATION
  Report Type: Spontaneous
  Country: FR (occurrence: FR)
  Receive Date: 20190823
  Receipt Date: 20190823
  Transmission Date: 20191005
  Serious: Yes (Hospitalization)
  Sender: FDA-Public Use
  Company Number: FR-MYLANLABS-2019M1078863

PATIENT
  Age: 43 Year
  Sex: Female

DRUGS (2)
  1. AMOXICILLINE                       /00249601/ [Suspect]
     Active Substance: AMOXICILLIN
     Indication: INFECTION
     Dosage: UNK
     Route: 042
     Dates: start: 20180626, end: 20180626
  2. ACICLOVIR [Suspect]
     Active Substance: ACYCLOVIR
     Indication: INFECTION
     Dosage: 750 MILLIGRAM, QD
     Route: 042
     Dates: start: 20180626, end: 20180626

REACTIONS (1)
  - Hypersensitivity [Recovered/Resolved]

NARRATIVE: CASE EVENT DATE: 20180626
